FAERS Safety Report 4697269-5 (Version None)
Quarter: 2005Q2

REPORT INFORMATION
  Report Type: 
  Country: None (occurrence: None)
  Receive Date: 20050622
  Receipt Date: 20050120
  Transmission Date: 20051028
  Serious: Yes (Other)
  Sender: FDA-Public Use
  Company Number: 2005AP00508

PATIENT
  Age: 72 Year
  Sex: Female

DRUGS (3)
  1. IRESSA [Suspect]
     Indication: SMALL CELL LUNG CANCER STAGE UNSPECIFIED
     Dosage: INTERRUPTED FOR 25 DAYS
     Route: 048
     Dates: start: 20031205
  2. IRESSA [Suspect]
     Dosage: INTERRUPTED FOR 25 DAYS
     Route: 048
  3. IRESSA [Suspect]
     Route: 048

REACTIONS (6)
  - CEREBRAL HAEMORRHAGE [None]
  - ECZEMA ASTEATOTIC [None]
  - FALL [None]
  - HEPATIC FUNCTION ABNORMAL [None]
  - SUDDEN DEATH [None]
  - XERODERMA [None]
